FAERS Safety Report 8492556-7 (Version None)
Quarter: 2012Q3

REPORT INFORMATION
  Report Type: 
  Country: None (occurrence: None)
  Receive Date: 20120706
  Receipt Date: 20120703
  Transmission Date: 20120928
  Serious: Yes (Other)
  Sender: FDA-Public Use
  Company Number: CA-ROCHE-1041775

PATIENT
  Sex: Female
  Weight: 74.91 kg

DRUGS (8)
  1. ACTONEL [Concomitant]
  2. TYLENOL W/ CODEINE NO. 3 [Concomitant]
  3. CELEBREX [Concomitant]
  4. CYMBALTA [Concomitant]
  5. PREDNISONE [Concomitant]
  6. OXYCODONE HCL [Concomitant]
  7. ACTEMRA [Suspect]
     Indication: RHEUMATOID ARTHRITIS
     Route: 042
     Dates: start: 20110627, end: 20110825
  8. ACTEMRA [Suspect]
     Route: 042
     Dates: start: 20110825, end: 20120531

REACTIONS (6)
  - DEPRESSION [None]
  - BREAST CYST [None]
  - SUICIDAL IDEATION [None]
  - THROMBOSIS [None]
  - FIBROMYALGIA [None]
  - ILL-DEFINED DISORDER [None]
